FAERS Safety Report 4824703-X (Version None)
Quarter: 2005Q4

REPORT INFORMATION
  Report Type: 
  Country: None (occurrence: None)
  Receive Date: 20051108
  Receipt Date: 20051021
  Transmission Date: 20060501
  Serious: Yes (Other)
  Sender: FDA-Public Use
  Company Number: DE_051017235

PATIENT
  Age: 40 Year
  Sex: Female

DRUGS (12)
  1. HUMALOG [Suspect]
     Indication: DIABETES MELLITUS INSULIN-DEPENDENT
  2. APROVEL (IRBESARTAN) [Concomitant]
  3. CITALOPRAM [Concomitant]
  4. ALLOPURINOL [Concomitant]
  5. FUROSEMIDE [Concomitant]
  6. SIMVABETA (SIMVASTATIN) [Concomitant]
  7. TRAVATAN [Concomitant]
  8. ISOGLAUCON (CLONIDINE HYDROCHLORIDE) [Concomitant]
  9. LANTUS [Concomitant]
  10. NORVASC [Concomitant]
  11. PIRAZETAM (PIRACETAM) [Concomitant]
  12. LEVEMIR (INSULIN DETEMIR) [Concomitant]

REACTIONS (6)
  - BLOOD GLUCOSE INCREASED [None]
  - DRUG INEFFECTIVE [None]
  - HYPOGLYCAEMIA [None]
  - INTENTIONAL OVERDOSE [None]
  - PHARMACEUTICAL PRODUCT COMPLAINT [None]
  - TRISMUS [None]
